FAERS Safety Report 6168704-0 (Version None)
Quarter: 2009Q2

REPORT INFORMATION
  Report Type: 
  Country: None (occurrence: None)
  Receive Date: 20090427
  Receipt Date: 20090416
  Transmission Date: 20091009
  Serious: Yes (Death)
  Sender: FDA-Public Use
  Company Number: US-TYCO HEALTHCARE/MALLINCKRODT-T200900892

PATIENT

DRUGS (1)
  1. OXYCODONE [Suspect]

REACTIONS (2)
  - DEATH [None]
  - DRUG DIVERSION [None]
